FAERS Safety Report 8070631-9 (Version None)
Quarter: 2012Q1

REPORT INFORMATION
  Report Type: 
  Country: None (occurrence: None)
  Receive Date: 20120125
  Receipt Date: 20120118
  Transmission Date: 20120608
  Serious: Yes (Death, Other)
  Sender: FDA-Public Use
  Company Number: PHEH2012US001983

PATIENT
  Sex: Female

DRUGS (8)
  1. DIGOXIN [Concomitant]
     Dosage: 0.125 MG, QD
     Route: 048
  2. COREG [Concomitant]
     Dosage: 25 MG, BID
  3. TORSEMIDE [Concomitant]
     Dosage: 50 MG, QD
  4. INSPRA [Concomitant]
     Dosage: 50 MG, BID
  5. ENALAPRIL MALEATE [Concomitant]
     Dosage: 5 MG, BID
     Route: 048
  6. ASPIRIN [Concomitant]
     Dosage: 81 MG, QD
  7. DEMADEX [Concomitant]
     Dosage: 100 MG, QD
     Route: 048
  8. TEKTURNA [Suspect]
     Dosage: 100 MG, QD
     Route: 048

REACTIONS (42)
  - VENTRICULAR HYPOKINESIA [None]
  - CARDIO-RESPIRATORY ARREST [None]
  - RENAL IMPAIRMENT [None]
  - OLIGURIA [None]
  - AZOTAEMIA [None]
  - RESPIRATORY FAILURE [None]
  - ORTHOPNOEA [None]
  - DYSGEUSIA [None]
  - DIARRHOEA [None]
  - INJURY [None]
  - HYPERMAGNESAEMIA [None]
  - EJECTION FRACTION DECREASED [None]
  - WEIGHT INCREASED [None]
  - RENAL CYST [None]
  - MALAISE [None]
  - PAIN [None]
  - HYPERKALAEMIA [None]
  - SWELLING [None]
  - CARDIOMEGALY [None]
  - IRON DEFICIENCY ANAEMIA [None]
  - FURUNCLE [None]
  - RENAL FAILURE CHRONIC [None]
  - DYSPNOEA [None]
  - OEDEMA [None]
  - CARDIOMYOPATHY [None]
  - CARDIORENAL SYNDROME [None]
  - TRICUSPID VALVE INCOMPETENCE [None]
  - CELLULITIS [None]
  - BACTERAEMIA [None]
  - TACHYCARDIA [None]
  - EMOTIONAL DISTRESS [None]
  - ABNORMAL LOSS OF WEIGHT [None]
  - RENAL TUBULAR NECROSIS [None]
  - HYPERPARATHYROIDISM [None]
  - MITRAL VALVE INCOMPETENCE [None]
  - CARDIAC FAILURE CONGESTIVE [None]
  - SENSORY LOSS [None]
  - LEFT VENTRICULAR DYSFUNCTION [None]
  - ARRHYTHMIA [None]
  - PULMONARY CONGESTION [None]
  - LEFT ATRIAL DILATATION [None]
  - VISION BLURRED [None]
